FAERS Safety Report 23570259 (Version 1)
Quarter: 2024Q1

REPORT INFORMATION
  Report Type: Spontaneous
  Country: FR (occurrence: FR)
  Receive Date: 20240227
  Receipt Date: 20240227
  Transmission Date: 20240409
  Serious: Yes (Hospitalization)
  Sender: FDA-Public Use
  Company Number: None

PATIENT
  Age: 33 Year
  Sex: Male

DRUGS (7)
  1. CLONAZEPAM [Suspect]
     Active Substance: CLONAZEPAM
  2. BROMAZEPAM [Suspect]
     Active Substance: BROMAZEPAM
  3. PREGABALIN [Suspect]
     Active Substance: PREGABALIN
     Dosage: 3 TABLETS
  4. COCAINE [Suspect]
     Active Substance: COCAINE
     Dosage: 2 RAILS
  5. BUPRENORPHINE [Suspect]
     Active Substance: BUPRENORPHINE
  6. CANNABIS SATIVA SUBSP. INDICA TOP [Suspect]
     Active Substance: CANNABIS SATIVA SUBSP. INDICA TOP
  7. MORPHINE [Concomitant]
     Active Substance: MORPHINE

REACTIONS (4)
  - Substance use disorder [Unknown]
  - Coma [Recovered/Resolved]
  - Miosis [Recovered/Resolved]
  - Bradypnoea [Recovered/Resolved]
